FAERS Safety Report 20708638 (Version 2)
Quarter: 2022Q2

REPORT INFORMATION
  Report Type: Spontaneous
  Country: CA (occurrence: CA)
  Receive Date: 20220414
  Receipt Date: 20220510
  Transmission Date: 20220721
  Serious: Yes (Other)
  Sender: FDA-Public Use
  Company Number: CA-AUROBINDO-AUR-APL-2021-048775

PATIENT
  Age: 80 Year
  Sex: Male
  Weight: 75 kg

DRUGS (3)
  1. FOLOTYN [Suspect]
     Active Substance: PRALATREXATE
     Indication: Product used for unknown indication
     Dosage: 60 MILLIGRAM, EVERY WEEK
     Route: 065
     Dates: start: 20210531, end: 202106
  2. FOLOTYN [Suspect]
     Active Substance: PRALATREXATE
     Dosage: 40 MILLIGRAM, EVERY OTHER WEEK
     Route: 065
     Dates: start: 2021, end: 2021
  3. FOLOTYN [Suspect]
     Active Substance: PRALATREXATE
     Dosage: 40 MILLIGRAM (2-WEEKS ON, 2-WEEKS OFF SCHEDULE)
     Route: 065
     Dates: start: 20210804

REACTIONS (2)
  - Mucosal inflammation [Recovered/Resolved]
  - Treatment delayed [Unknown]

NARRATIVE: CASE EVENT DATE: 20210615
